FAERS Safety Report 10651875 (Version 2)
Quarter: 2014Q4

REPORT INFORMATION
  Report Type: Report from Study
  Country: US (occurrence: US)
  Receive Date: 20141215
  Receipt Date: 20141226
  Transmission Date: 20150529
  Serious: Yes (Hospitalization)
  Sender: FDA-Public Use
  Company Number: US-VERTEX PHARMACEUTICALS-2014-004814

PATIENT
  Age: 27 Year
  Sex: Male

DRUGS (2)
  1. IVACAFTOR [Suspect]
     Active Substance: IVACAFTOR
     Indication: CYSTIC FIBROSIS
     Dosage: 150 MG, BID
     Route: 048
     Dates: start: 20120320
  2. IVACAFTOR [Suspect]
     Active Substance: IVACAFTOR
     Dosage: 150 MG, BID
     Route: 048
     Dates: start: 20141211

REACTIONS (1)
  - Infective pulmonary exacerbation of cystic fibrosis [Recovering/Resolving]

NARRATIVE: CASE EVENT DATE: 20141204
